FAERS Safety Report 14340904 (Version 4)
Quarter: 2018Q2

REPORT INFORMATION
  Report Type: Spontaneous
  Country: DK (occurrence: DK)
  Receive Date: 20180102
  Receipt Date: 20180531
  Transmission Date: 20180711
  Serious: Yes (Hospitalization, Other)
  Sender: FDA-Public Use
  Company Number: DK-CONCORDIA PHARMACEUTICALS INC.-E2B_00009188

PATIENT
  Age: 36 Year
  Sex: Male

DRUGS (10)
  1. PREDNISOLONE. [Suspect]
     Active Substance: PREDNISOLONE
  2. PREDNISOLONE. [Suspect]
     Active Substance: PREDNISOLONE
  3. SULFAMETHOXAZOLE [Concomitant]
     Active Substance: SULFAMETHOXAZOLE
     Indication: PROPHYLAXIS
  4. PREDNISOLONE. [Suspect]
     Active Substance: PREDNISOLONE
     Indication: GRANULOMATOSIS WITH POLYANGIITIS
     Dates: start: 2013, end: 2014
  5. KALETRA [Concomitant]
     Active Substance: LOPINAVIR\RITONAVIR
     Indication: HIV INFECTION
     Dates: start: 201311
  6. RALTEGRAVIR. [Concomitant]
     Active Substance: RALTEGRAVIR
     Indication: HIV INFECTION
  7. TRIMETHOPRIM. [Concomitant]
     Active Substance: TRIMETHOPRIM
     Indication: PROPHYLAXIS
  8. LAMIVUDINE. [Concomitant]
     Active Substance: LAMIVUDINE
     Indication: HIV INFECTION
  9. TENOFOVIR [Suspect]
     Active Substance: TENOFOVIR
     Indication: HIV INFECTION
     Dates: start: 201311, end: 2014
  10. ZIDOVUDINE. [Concomitant]
     Active Substance: ZIDOVUDINE
     Indication: HIV INFECTION
     Dates: start: 201311, end: 2014

REACTIONS (4)
  - Dyspnoea [Recovered/Resolved]
  - Interstitial lung disease [Recovered/Resolved]
  - Osteoporotic fracture [Unknown]
  - Condition aggravated [Unknown]

NARRATIVE: CASE EVENT DATE: 201405
